FAERS Safety Report 7145810-5 (Version None)
Quarter: 2010Q4

REPORT INFORMATION
  Report Type: 
  Country: None (occurrence: None)
  Receive Date: 20101208
  Receipt Date: 20101129
  Transmission Date: 20110411
  Serious: Yes (Other)
  Sender: FDA-Public Use
  Company Number: A0898192A

PATIENT
  Age: 26 Year
  Sex: Female

DRUGS (3)
  1. COMBIVIR [Suspect]
     Indication: HIV INFECTION
     Route: 048
     Dates: start: 20090822
  2. NORVIR [Suspect]
     Indication: HIV INFECTION
     Dosage: 200MGD PER DAY
     Route: 048
     Dates: start: 20090924
  3. PREZISTA [Suspect]
     Indication: HIV INFECTION
     Dosage: 600MGD PER DAY
     Route: 048
     Dates: start: 20090924

REACTIONS (3)
  - DRUG EXPOSURE DURING PREGNANCY [None]
  - LIVE BIRTH [None]
  - PREMATURE LABOUR [None]
